FAERS Safety Report 21972144 (Version 1)
Quarter: 2023Q1

REPORT INFORMATION
  Report Type: Other
  Country: GB (occurrence: GB)
  Receive Date: 20230209
  Receipt Date: 20230209
  Transmission Date: 20230417
  Serious: Yes (Hospitalization)
  Sender: FDA-Public Use
  Company Number: None

PATIENT
  Sex: Female

DRUGS (12)
  1. FLUOXETINE [Suspect]
     Active Substance: FLUOXETINE HYDROCHLORIDE
     Indication: Product used for unknown indication
     Dosage: 40 MILLIGRAM, QD
     Route: 048
     Dates: start: 20230126
  2. LORAZEPAM [Suspect]
     Active Substance: LORAZEPAM
     Indication: Agitation
     Dosage: UNK (1-2MG,4-6 HOURLY,MAXIMUM DOSE 4MG)
     Route: 048
     Dates: start: 20230126
  3. PROMETHAZINE HYDROCHLORIDE [Suspect]
     Active Substance: PROMETHAZINE HYDROCHLORIDE
     Indication: Insomnia
     Dosage: UNK (25-50MG,4-6HOURLY,MAXIMUM DOSE 50MG)
     Route: 048
     Dates: start: 20230126
  4. PROMETHAZINE HYDROCHLORIDE [Suspect]
     Active Substance: PROMETHAZINE HYDROCHLORIDE
     Indication: Agitation
     Dosage: UNK
     Route: 065
  5. CLOZARIL [Suspect]
     Active Substance: CLOZAPINE
     Indication: Product used for unknown indication
     Dosage: UNK (TABLET)
     Route: 048
     Dates: start: 20140310
  6. CLOZARIL [Suspect]
     Active Substance: CLOZAPINE
     Dosage: 175 MILLIGRAM, QD (TABLET)
     Route: 048
     Dates: start: 20230126
  7. CLOZARIL [Suspect]
     Active Substance: CLOZAPINE
     Dosage: 200 MILLIGRAM, QD(OD) (TABLET)
     Route: 048
     Dates: start: 20230130
  8. SCOPOLAMINE HYDROBROMIDE [Suspect]
     Active Substance: SCOPOLAMINE HYDROBROMIDE
     Indication: Salivary hypersecretion
     Dosage: UNK (150-300MG, Q6H,MAXIMUM DOSE 900MG)
     Route: 048
     Dates: start: 20230126
  9. LACTULOSE [Suspect]
     Active Substance: LACTULOSE
     Indication: Constipation
     Dosage: 5 MILLILITER (5 MILLILITER,4-6 HOURLY,MAXIMUM DOSE 15ML)
     Route: 048
     Dates: start: 20230126
  10. ACETAMINOPHEN [Suspect]
     Active Substance: ACETAMINOPHEN
     Indication: Pain
     Dosage: 1 GRAM (1 GRAM,4-6HOURLY,MAXIMUM DOSE 4GM)
     Route: 048
     Dates: start: 20230126
  11. ACETAMINOPHEN [Suspect]
     Active Substance: ACETAMINOPHEN
     Indication: Pyrexia
     Dosage: UNK
     Route: 065
  12. VALPROIC ACID [Suspect]
     Active Substance: VALPROIC ACID
     Indication: Salivary hypersecretion
     Dosage: 500 MILLIGRAM, BID (1000 MG)
     Route: 048
     Dates: start: 20230126

REACTIONS (3)
  - Paranoia [Unknown]
  - Malaise [Unknown]
  - Off label use [Unknown]
